FAERS Safety Report 9148443 (Version 1)
Quarter: 2013Q1

REPORT INFORMATION
  Report Type: Spontaneous
  Country: CA (occurrence: None)
  Receive Date: 20130220
  Receipt Date: 20130220
  Transmission Date: 20140127
  Serious: Yes (Death)
  Sender: FDA-Public Use
  Company Number: 2013-02626

PATIENT
  Age: 2 Year
  Sex: Male

DRUGS (9)
  1. MORPHINE SULFATE (UNKNOWN) (MORPHINE SULFATE) UNK, UNKUNK [Suspect]
     Indication: SEDATION
  2. HEPARIN SODIUM [Suspect]
     Indication: ANTICOAGULANT THERAPY
  3. OXYGEN (OXYGEN) [Concomitant]
  4. PIPERACILLIN/TAZOBACTAM (PIPERACILLIN/TAZOBACTAM) [Concomitant]
  5. VANCOMYCIN (VANCOMYCIN) [Concomitant]
  6. TOBRAMYCIN (TOBRAMYCIN) [Concomitant]
  7. LASAIX /00032601/ (FUROSEMIDE) [Concomitant]
  8. EPINEPHRINE (EPINEPHRINE) [Concomitant]
  9. NOREPINEPHRINE (NOREPINEPHRINE) [Concomitant]

REACTIONS (5)
  - Hypoxic-ischaemic encephalopathy [None]
  - Cerebral haematoma [None]
  - Procedural haemorrhage [None]
  - Respiratory arrest [None]
  - Pneumonia [None]
